FAERS Safety Report 4599561-1 (Version None)
Quarter: 2005Q1

REPORT INFORMATION
  Report Type: 
  Country: None (occurrence: None)
  Receive Date: 20050307
  Receipt Date: 20040511
  Transmission Date: 20050727
  Serious: Yes (Hospitalization)
  Sender: FDA-Public Use
  Company Number: 200411913FR

PATIENT
  Age: 48 Year
  Sex: Male

DRUGS (7)
  1. CLAFORAN [Suspect]
     Indication: LUNG DISORDER
     Route: 042
     Dates: start: 20040401, end: 20040405
  2. CLAFORAN [Suspect]
     Indication: PLEURAL EFFUSION
     Route: 042
     Dates: start: 20040401, end: 20040405
  3. FLAGYL [Suspect]
     Indication: LUNG DISORDER
     Route: 042
     Dates: start: 20040401, end: 20040405
  4. AUGMENTIN '125' [Suspect]
     Indication: PLEURAL EFFUSION
     Route: 042
     Dates: start: 20040405, end: 20040413
  5. CLAMOXYL [Suspect]
     Route: 042
  6. LARGACTIL [Concomitant]
     Route: 048
     Dates: end: 20040413
  7. HALDOL [Concomitant]
     Route: 048

REACTIONS (4)
  - AGRANULOCYTOSIS [None]
  - INFECTION [None]
  - LEUKOPENIA [None]
  - NEUTROPENIA [None]
